FAERS Safety Report 4924039-2 (Version None)
Quarter: 2006Q1

REPORT INFORMATION
  Report Type: 
  Country: None (occurrence: None)
  Receive Date: 20060221
  Receipt Date: 20060207
  Transmission Date: 20060701
  Serious: Yes (Hospitalization)
  Sender: FDA-Public Use
  Company Number: HQWYE714708FEB06

PATIENT
  Age: 16 Year
  Sex: Male

DRUGS (1)
  1. ADVIL [Suspect]
     Indication: CHEST PAIN
     Dosage: 600 MG EVERY 6 HOURS,

REACTIONS (10)
  - BLOOD PRESSURE DIASTOLIC DECREASED [None]
  - DILATATION VENTRICULAR [None]
  - ELECTROCARDIOGRAM Q WAVES [None]
  - PELVIC VENOUS THROMBOSIS [None]
  - PULMONARY EMBOLISM [None]
  - QRS AXIS ABNORMAL [None]
  - RIGHT VENTRICULAR SYSTOLIC PRESSURE DECREASED [None]
  - TACHYCARDIA [None]
  - TRICUSPID VALVE INCOMPETENCE [None]
  - VENTRICULAR DYSKINESIA [None]
